FAERS Safety Report 11699017 (Version 1)
Quarter: 2015Q4

REPORT INFORMATION
  Report Type: Spontaneous
  Country: US (occurrence: US)
  Receive Date: 20151104
  Receipt Date: 20151104
  Transmission Date: 20160304
  Serious: Yes (Life-Threatening, Hospitalization)
  Sender: FDA-Public Use
  Company Number: US-009507513-0309USA02718

PATIENT
  Sex: Male

DRUGS (3)
  1. THERAPY UNSPECIFIED [Concomitant]
     Active Substance: UNSPECIFIED INGREDIENT
  2. PRINIVIL [Suspect]
     Active Substance: LISINOPRIL
     Dosage: UNK MG, UNK
     Route: 048
     Dates: start: 200308, end: 20030925
  3. PROSCAR [Suspect]
     Active Substance: FINASTERIDE
     Indication: PROSTATIC DISORDER
     Dosage: 5 MG, QD
     Route: 048
     Dates: start: 2001

REACTIONS (9)
  - Hypotension [Recovered/Resolved]
  - Medication error [Unknown]
  - Dizziness [Unknown]
  - Blood pressure decreased [Unknown]
  - Activities of daily living impaired [Unknown]
  - Circulatory collapse [Unknown]
  - Balance disorder [Unknown]
  - Blood pressure decreased [Recovered/Resolved]
  - Blood pressure fluctuation [Unknown]

NARRATIVE: CASE EVENT DATE: 200308
